FAERS Safety Report 7971320-9 (Version None)
Quarter: 2011Q4

REPORT INFORMATION
  Report Type: 
  Country: None (occurrence: None)
  Receive Date: 20111212
  Receipt Date: 20111207
  Transmission Date: 20120403
  Serious: Yes (Other)
  Sender: FDA-Public Use
  Company Number: PHHY2010CA58626

PATIENT
  Sex: Female

DRUGS (2)
  1. ZOLEDRONOC ACID [Suspect]
     Indication: OSTEOPOROSIS
     Dosage: 5 MG
     Route: 042
     Dates: start: 20080826
  2. AVALIDE [Concomitant]

REACTIONS (9)
  - HEADACHE [None]
  - NECK PAIN [None]
  - INCREASED APPETITE [None]
  - UNDERDOSE [None]
  - GROIN PAIN [None]
  - GAIT DISTURBANCE [None]
  - ASTHENIA [None]
  - PAIN IN EXTREMITY [None]
  - INSOMNIA [None]
